FAERS Safety Report 25643603 (Version 1)
Quarter: 2025Q3

REPORT INFORMATION
  Report Type: Report from Study
  Country: CA (occurrence: CA)
  Receive Date: 20250805
  Receipt Date: 20250805
  Transmission Date: 20251021
  Serious: Yes (Other)
  Sender: ABBVIE
  Company Number: CA-ABBVIE-6398074

PATIENT
  Age: 50 Year
  Sex: Female

DRUGS (2)
  1. SKYRIZI [Suspect]
     Active Substance: RISANKIZUMAB-RZAA
     Indication: Crohn^s disease
     Route: 058
  2. SKYRIZI [Suspect]
     Active Substance: RISANKIZUMAB-RZAA
     Indication: Hidradenitis

REACTIONS (15)
  - Surgery [Unknown]
  - Diarrhoea [Unknown]
  - Nodule [Unknown]
  - Eructation [Unknown]
  - Nausea [Recovering/Resolving]
  - Joint swelling [Unknown]
  - Arthralgia [Unknown]
  - Infrequent bowel movements [Unknown]
  - Dyschezia [Unknown]
  - Aphthous ulcer [Recovering/Resolving]
  - Bruxism [Unknown]
  - Abscess drainage [Unknown]
  - Flatulence [Unknown]
  - Inflammation [Unknown]
  - Ulcer [Recovered/Resolved]

NARRATIVE: CASE EVENT DATE: 20210101
